FAERS Safety Report 4758275-5 (Version None)
Quarter: 2005Q3

REPORT INFORMATION
  Report Type: 
  Country: None (occurrence: None)
  Receive Date: 20050826
  Receipt Date: 20050615
  Transmission Date: 20060218
  Serious: No
  Sender: FDA-Public Use
  Company Number: WAES0506USA02395

PATIENT
  Age: 63 Year
  Sex: Female

DRUGS (6)
  1. ZETIA [Suspect]
     Indication: HYPERCHOLESTEROLAEMIA
     Dosage: 10 MG DAILY PO
     Route: 048
     Dates: start: 20040101
  2. ACCUPRIL [Concomitant]
  3. INDOCIN [Concomitant]
  4. LESCOL [Concomitant]
  5. LIPITOR [Concomitant]
  6. LOPRESSOR [Concomitant]

REACTIONS (1)
  - MUSCULAR WEAKNESS [None]
